FAERS Safety Report 9507107 (Version 1)
Quarter: 2013Q1

REPORT INFORMATION
  Report Type: Spontaneous
  Country: US (occurrence: None)
  Receive Date: 20130305
  Receipt Date: 20130305
  Transmission Date: 20140127
  Serious: No
  Sender: FDA-Public Use
  Company Number: 163-21880-12030288

PATIENT
  Age: 82 Year
  Sex: Female
  Weight: 144 kg

DRUGS (2)
  1. REVLIMID (LENALIDOMIDE) (25 MILLIGRAM, CAPSULES) [Suspect]
     Indication: PLASMA CELL MYELOMA
     Dosage: 25MG, DAILY 21 DAYS, PO
     Route: 048
     Dates: start: 20110324, end: 20110728
  2. DECADRON (DEXAMETHASONE) [Concomitant]

REACTIONS (2)
  - Peripheral sensory neuropathy [None]
  - Condition aggravated [None]
